FAERS Safety Report 5649263-5 (Version None)
Quarter: 2008Q1

REPORT INFORMATION
  Report Type: 
  Country: None (occurrence: None)
  Receive Date: 20080304
  Receipt Date: 20071120
  Transmission Date: 20080703
  Serious: No
  Sender: FDA-Public Use
  Company Number: US-BAYER-200715412NA

PATIENT
  Age: 58 Year
  Sex: Female
  Weight: 65 kg

DRUGS (1)
  1. MAGNEVIST SINGLE USE VIAL [Suspect]
     Indication: NUCLEAR MAGNETIC RESONANCE IMAGING
     Dosage: UNIT DOSE: 15 ML
     Route: 042
     Dates: start: 20071119, end: 20071119

REACTIONS (4)
  - COLD SWEAT [None]
  - COUGH [None]
  - URTICARIA [None]
  - VOMITING [None]
